FAERS Safety Report 5951010-4 (Version None)
Quarter: 2008Q4

REPORT INFORMATION
  Report Type: 
  Country: None (occurrence: None)
  Receive Date: 20081110
  Receipt Date: 20081027
  Transmission Date: 20090506
  Serious: Yes (Other)
  Sender: FDA-Public Use
  Company Number: 230524K08USA

PATIENT
  Age: 48 Year
  Sex: Male
  Weight: 77 kg

DRUGS (3)
  1. REBIF [Suspect]
     Indication: MULTIPLE SCLEROSIS
     Dosage: 44 MCG, 3 IN 1 WEEKS, SUBCUTANEOUS
     Route: 058
     Dates: start: 20020602
  2. FLUOXETINE [Concomitant]
  3. BACLOFEN [Concomitant]

REACTIONS (5)
  - ADRENAL CARCINOMA [None]
  - PANCREATIC NEOPLASM [None]
  - RED BLOOD CELL COUNT INCREASED [None]
  - RENAL CANCER [None]
  - THYROID CANCER [None]
